FAERS Safety Report 11154564 (Version 1)
Quarter: 2015Q2

REPORT INFORMATION
  Report Type: Spontaneous
  Country: US (occurrence: US)
  Receive Date: 20150602
  Receipt Date: 20150602
  Transmission Date: 20150821
  Serious: No
  Sender: FDA-Public Use
  Company Number: US-NOVEN PHARMACEUTICALS, INC.-15US013378

PATIENT
  Age: 9 Year
  Sex: Male

DRUGS (1)
  1. DAYTRANA [Suspect]
     Active Substance: METHYLPHENIDATE
     Indication: ATTENTION DEFICIT/HYPERACTIVITY DISORDER
     Dosage: 20 MG, DAILY
     Route: 062
     Dates: start: 20150117, end: 20150121

REACTIONS (9)
  - Miosis [Recovered/Resolved]
  - Drug administered at inappropriate site [Recovered/Resolved]
  - Product quality issue [Recovered/Resolved]
  - Drug effect increased [Recovered/Resolved]
  - Headache [Recovered/Resolved]
  - Drug administration error [Recovered/Resolved]
  - Mydriasis [Recovered/Resolved]
  - Muscle twitching [Recovered/Resolved]
  - Nausea [Recovered/Resolved]

NARRATIVE: CASE EVENT DATE: 201501
